FAERS Safety Report 9947419 (Version 1)
Quarter: 2014Q1

REPORT INFORMATION
  Report Type: Spontaneous
  Country: US (occurrence: US)
  Receive Date: 20140303
  Receipt Date: 20140303
  Transmission Date: 20141002
  Serious: No
  Sender: FDA-Public Use
  Company Number: US-ABBVIE-13P-163-1060893-00

PATIENT
  Age: 34 Year
  Sex: Female
  Weight: 83.99 kg

DRUGS (5)
  1. HUMIRA [Suspect]
     Indication: CROHN^S DISEASE
     Dosage: LOADING DOSE 160 MG
     Dates: start: 20120728, end: 20120728
  2. HUMIRA [Suspect]
     Dosage: LOADING DOSE 80 MG
     Dates: start: 20120811, end: 20120811
  3. HUMIRA [Suspect]
     Dates: start: 20120825
  4. PRENATAL VITAMINS [Concomitant]
     Indication: VITAMIN SUPPLEMENTATION
  5. PRENATAL VITAMINS [Concomitant]
     Indication: PREGNANCY

REACTIONS (2)
  - Dyspepsia [Not Recovered/Not Resolved]
  - Shortened cervix [Unknown]
